FAERS Safety Report 5447464-2 (Version None)
Quarter: 2007Q3

REPORT INFORMATION
  Report Type: 
  Country: None (occurrence: None)
  Receive Date: 20070905
  Receipt Date: 20070821
  Transmission Date: 20080115
  Serious: Yes (Hospitalization)
  Sender: FDA-Public Use
  Company Number: GXKR2007AT07205

PATIENT
  Age: 64 Year
  Sex: Female

DRUGS (2)
  1. LEFLUNOMIDE [Suspect]
     Indication: RHEUMATOID ARTHRITIS
     Dosage: 10 MG, 20 MG
  2. METAMIZOLE [Suspect]

REACTIONS (8)
  - BONE MARROW TOXICITY [None]
  - DRUG INTERACTION [None]
  - LEUKOPENIA [None]
  - LYMPHOPENIA [None]
  - MYELODYSPLASTIC SYNDROME [None]
  - NEUTROPENIA [None]
  - PYREXIA [None]
  - STOMATITIS [None]
